FAERS Safety Report 18579554 (Version 1)
Quarter: 2020Q4

REPORT INFORMATION
  Report Type: Spontaneous
  Country: US (occurrence: US)
  Receive Date: 20201204
  Receipt Date: 20201204
  Transmission Date: 20210114
  Serious: Yes (Hospitalization, Other)
  Sender: FDA-Public Use
  Company Number: US-PFIZER INC-2020473053

PATIENT
  Sex: Female

DRUGS (1)
  1. ZIRABEV [Suspect]
     Active Substance: BEVACIZUMAB-BVZR
     Indication: OVARIAN CANCER
     Dosage: UNK

REACTIONS (8)
  - Diarrhoea [Unknown]
  - Abdominal distension [Unknown]
  - Illness [Unknown]
  - Off label use [Unknown]
  - Hypoaesthesia [Unknown]
  - Pain [Unknown]
  - Abdominal pain upper [Unknown]
  - Gastrointestinal oedema [Unknown]
